FAERS Safety Report 10734791 (Version 5)
Quarter: 2015Q4

REPORT INFORMATION
  Report Type: Report from Study
  Country: US (occurrence: US)
  Receive Date: 20150123
  Receipt Date: 20151023
  Transmission Date: 20160304
  Serious: Yes (Hospitalization, Other)
  Sender: FDA-Public Use
  Company Number: US-AMGEN INC.-2014-2646

PATIENT
  Age: 69 Year
  Sex: Male

DRUGS (3)
  1. NEULASTA [Concomitant]
     Active Substance: PEGFILGRASTIM
     Indication: PROPHYLAXIS
     Dosage: UNK
     Route: 058
     Dates: start: 201403
  2. KYPROLIS [Suspect]
     Active Substance: CARFILZOMIB
     Indication: PLASMA CELL MYELOMA
     Dosage: UNK, 2 TIMES/WK
     Route: 042
     Dates: start: 201409
  3. NEUPOGEN [Concomitant]
     Active Substance: FILGRASTIM
     Dosage: UNK
     Route: 058
     Dates: start: 201403

REACTIONS (7)
  - Tooth fracture [Recovered/Resolved]
  - Abdominal discomfort [Unknown]
  - Surgery [Unknown]
  - Pneumonia [Recovering/Resolving]
  - Oral discomfort [Unknown]
  - Hypertension [Unknown]
  - Blood immunoglobulin G increased [Unknown]

NARRATIVE: CASE EVENT DATE: 201411
